FAERS Safety Report 10579883 (Version 2)
Quarter: 2014Q4

REPORT INFORMATION
  Report Type: Report from Study
  Country: KP (occurrence: KR)
  Receive Date: 20141112
  Receipt Date: 20141219
  Transmission Date: 20150529
  Serious: Yes (Death, Hospitalization, Other)
  Sender: FDA-Public Use
  Company Number: KP-GLAXOSMITHKLINE-KR2014GSK014255

PATIENT
  Age: 73 Year
  Sex: Male
  Weight: 72.3 kg

DRUGS (12)
  1. FLIVAS [Concomitant]
     Active Substance: NAFTOPIDIL
     Indication: BENIGN PROSTATIC HYPERPLASIA
     Dosage: 75 MG, UNK
     Route: 048
     Dates: start: 20130624, end: 20131231
  2. PARAMACET [Concomitant]
     Indication: CANCER PAIN
     Dosage: 975 MG, UNK
     Dates: start: 20130604, end: 20131231
  3. GLIMEL [Concomitant]
     Indication: DIABETES MELLITUS
     Dosage: 2 MG, UNK
     Route: 048
     Dates: start: 2000, end: 20131231
  4. TOPOTECAN HYDROCHLORIDE. [Suspect]
     Active Substance: TOPOTECAN HYDROCHLORIDE
     Indication: SMALL CELL LUNG CANCER
     Dosage: 3.25 MG/M2, QD
     Route: 048
     Dates: start: 20131121, end: 20131125
  5. STOGAR [Concomitant]
     Indication: GASTRITIS
     Dosage: 20 MG, UNK
     Route: 048
     Dates: start: 20131121, end: 20131219
  6. ZOFRAN [Concomitant]
     Active Substance: ONDANSETRON HYDROCHLORIDE
     Indication: VOMITING
  7. DIOVAN [Concomitant]
     Active Substance: VALSARTAN
     Indication: HYPERTENSION
     Dosage: 80 MG, UNK
     Route: 048
     Dates: start: 2000, end: 20131231
  8. ERDOS [Concomitant]
     Indication: COUGH
     Dosage: 900 MG, UNK
     Route: 048
     Dates: start: 20130718, end: 20131231
  9. MUCOSTA [Concomitant]
     Active Substance: REBAMIPIDE
     Indication: GASTRITIS
     Dosage: 300 MG, UNK
     Dates: start: 20130624, end: 20131231
  10. ZOFRAN [Concomitant]
     Active Substance: ONDANSETRON HYDROCHLORIDE
     Indication: NAUSEA
     Dosage: 8 MG, UNK
     Route: 048
     Dates: start: 20131216, end: 20131220
  11. TOPOTECAN HYDROCHLORIDE. [Suspect]
     Active Substance: TOPOTECAN HYDROCHLORIDE
     Dosage: 3.3 MG/M2, QD
     Route: 048
     Dates: start: 20131212, end: 20131216
  12. HARNAL [Concomitant]
     Active Substance: TAMSULOSIN HYDROCHLORIDE
     Indication: BENIGN PROSTATIC HYPERPLASIA
     Dosage: 0.2 MG, UNK
     Route: 048
     Dates: start: 20131121, end: 20131231

REACTIONS (2)
  - Pneumonia [Not Recovered/Not Resolved]
  - Lung neoplasm malignant [Fatal]

NARRATIVE: CASE EVENT DATE: 20131231
